APPROVED DRUG PRODUCT: OXYBUTYNIN CHLORIDE
Active Ingredient: OXYBUTYNIN CHLORIDE
Strength: 5MG
Dosage Form/Route: TABLET;ORAL
Application: A210125 | Product #001 | TE Code: AB
Applicant: TP ANDA HOLDINGS LLC
Approved: Sep 6, 2018 | RLD: No | RS: No | Type: RX